FAERS Safety Report 4518703-7 (Version None)
Quarter: 2004Q4

REPORT INFORMATION
  Report Type: 
  Country: None (occurrence: None)
  Receive Date: 20041201
  Receipt Date: 20041112
  Transmission Date: 20050328
  Serious: Yes (Death, Life-Threatening, Hospitalization)
  Sender: FDA-Public Use
  Company Number: 2004-DE-05971GL

PATIENT
  Age: 78 Year
  Sex: Male

DRUGS (4)
  1. TELMISARTAN (TELMISARTAN) [Suspect]
     Indication: ESSENTIAL HYPERTENSION
     Dosage: MONTHS
     Route: 048
  2. ATENOLOL [Suspect]
     Indication: ESSENTIAL HYPERTENSION
     Dosage: MONTHS
     Route: 048
  3. PRAVASTATIN SODIUM [Suspect]
     Indication: HYPERCHOLESTEROLAEMIA
     Dosage: MONTHS
     Route: 048
  4. NITROGLYCERINE PATCH (CP) [Suspect]
     Indication: ANGINA PECTORIS
     Dosage: MONTHS
     Route: 061

REACTIONS (5)
  - DILATATION VENTRICULAR [None]
  - DYSPNOEA [None]
  - HYPOXIA [None]
  - LUNG DISORDER [None]
  - PULMONARY HYPERTENSION [None]
